FAERS Safety Report 25026028 (Version 3)
Quarter: 2025Q2

REPORT INFORMATION
  Report Type: Spontaneous
  Country: JP (occurrence: JP)
  Receive Date: 20250301
  Receipt Date: 20250630
  Transmission Date: 20250717
  Serious: Yes (Death, Life-Threatening, Hospitalization)
  Sender: AMGEN
  Company Number: JP-KISSEI-TV20230693_P_1

PATIENT
  Age: 79 Year
  Sex: Female
  Weight: 47.9 kg

DRUGS (26)
  1. TAVNEOS [Suspect]
     Active Substance: AVACOPAN
     Indication: Microscopic polyangiitis
     Dosage: 30,MG,BID
     Route: 048
     Dates: start: 20230217, end: 20240401
  2. PREDONINE [Suspect]
     Active Substance: PREDNISOLONE
     Indication: Microscopic polyangiitis
     Dosage: 15,MG,QD
     Route: 048
     Dates: start: 20230217, end: 20230316
  3. PREDONINE [Suspect]
     Active Substance: PREDNISOLONE
     Dosage: 12.5,MG,QD
     Route: 048
     Dates: start: 20230317, end: 20230330
  4. PREDONINE [Suspect]
     Active Substance: PREDNISOLONE
     Dosage: 10,MG,QD
     Route: 048
     Dates: start: 20230331, end: 20230413
  5. PREDONINE [Suspect]
     Active Substance: PREDNISOLONE
     Dosage: 7.5,MG,QD
     Route: 048
     Dates: start: 20230414, end: 20230427
  6. PREDONINE [Suspect]
     Active Substance: PREDNISOLONE
     Dosage: 5,MG,QD
     Route: 048
     Dates: start: 20230428, end: 20230525
  7. PREDONINE [Suspect]
     Active Substance: PREDNISOLONE
     Dosage: 4,MG,QD
     Route: 048
     Dates: start: 20230526, end: 20230629
  8. PREDONINE [Suspect]
     Active Substance: PREDNISOLONE
     Dosage: 3,MG,QD
     Route: 048
     Dates: start: 20230630, end: 20230817
  9. PREDONINE [Suspect]
     Active Substance: PREDNISOLONE
     Dosage: 2,MG,QD
     Route: 048
     Dates: start: 20230818, end: 20230824
  10. PREDONINE [Suspect]
     Active Substance: PREDNISOLONE
     Dosage: 3,MG,QD
     Route: 048
     Dates: start: 20230825
  11. PREDONINE [Suspect]
     Active Substance: PREDNISOLONE
     Route: 065
  12. MIYA-BM [Concomitant]
     Active Substance: CLOSTRIDIUM BUTYRICUM SPORES STRAIN M-55
     Route: 048
  13. AMLODIPINE [Concomitant]
     Active Substance: AMLODIPINE BESYLATE
     Route: 048
  14. AMLODIPINE [Concomitant]
     Active Substance: AMLODIPINE BESYLATE
     Route: 048
  15. URSO [Concomitant]
     Active Substance: URSODIOL
     Route: 048
  16. LANSOPRAZOLE [Concomitant]
     Active Substance: LANSOPRAZOLE
     Route: 065
  17. SULFAMETHOXAZOLE\TRIMETHOPRIM [Concomitant]
     Active Substance: SULFAMETHOXAZOLE\TRIMETHOPRIM
     Indication: Antifungal prophylaxis
     Dosage: PERORAL MEDICINE
     Route: 048
  18. BONALON [Concomitant]
     Active Substance: ALENDRONATE SODIUM
     Route: 065
  19. RITUXIMAB [Concomitant]
     Active Substance: RITUXIMAB
     Indication: Microscopic polyangiitis
     Dosage: 450 MG, QD
     Route: 040
     Dates: start: 20230227, end: 20230227
  20. URSODIOL [Concomitant]
     Active Substance: URSODIOL
     Route: 048
  21. VONOPRAZAN FUMARATE [Concomitant]
     Active Substance: VONOPRAZAN FUMARATE
  22. SODIUM BICARBONATE [Concomitant]
     Active Substance: SODIUM BICARBONATE
     Route: 048
     Dates: end: 20230222
  23. SULFAMETHOXAZOLE\TRIMETHOPRIM [Concomitant]
     Active Substance: SULFAMETHOXAZOLE\TRIMETHOPRIM
     Indication: Antifungal prophylaxis
     Dosage: 480,MG,QD
     Route: 048
  24. FEBUXOSTAT [Concomitant]
     Active Substance: FEBUXOSTAT
     Route: 048
     Dates: start: 20230217
  25. SODIUM FERROUS CITRATE [Concomitant]
     Active Substance: SODIUM FERROUS CITRATE
     Route: 048
     Dates: start: 20231120
  26. AZOSEMIDE [Concomitant]
     Active Substance: AZOSEMIDE
     Route: 048
     Dates: start: 20240129

REACTIONS (5)
  - Cholangiocarcinoma [Fatal]
  - Pneumonia bacterial [Unknown]
  - Pneumonia [Recovering/Resolving]
  - Hepatic function abnormal [Recovered/Resolved]
  - Hepatic function abnormal [Unknown]

NARRATIVE: CASE EVENT DATE: 20230428
